FAERS Safety Report 8967356 (Version 1)
Quarter: 2012Q4

REPORT INFORMATION
  Report Type: 
  Country: BR (occurrence: BR)
  Receive Date: 20121214
  Receipt Date: 20121214
  Transmission Date: 20130627
  Serious: Yes (Other)
  Sender: FDA-Public Use
  Company Number: PHHY2012BR104489

PATIENT
  Sex: Female

DRUGS (3)
  1. TOFRANIL [Suspect]
     Indication: NEURALGIA
     Dosage: 25 mg, Q12H (morning/night)
     Route: 048
     Dates: end: 201209
  2. TOFRANIL [Suspect]
     Dosage: 25 mg, daily
     Route: 048
  3. LOSARTAN [Suspect]
     Dosage: 1 DF, daily
     Route: 048
     Dates: start: 201103

REACTIONS (3)
  - Urinary incontinence [Unknown]
  - Fear [Unknown]
  - Chromaturia [Unknown]
